FAERS Safety Report 7227606-9 (Version None)
Quarter: 2011Q1

REPORT INFORMATION
  Report Type: 
  Country: None (occurrence: None)
  Receive Date: 20110114
  Receipt Date: 20110106
  Transmission Date: 20110831
  Serious: Yes (Other)
  Sender: FDA-Public Use
  Company Number: US-US-EMD SERONO, INC.-7015476

PATIENT
  Sex: Female
  Weight: 127 kg

DRUGS (4)
  1. ALTMED [Concomitant]
     Indication: MIGRAINE
  2. REBIF [Suspect]
     Indication: MULTIPLE SCLEROSIS
     Route: 058
     Dates: start: 20080506
  3. BACLOFEN [Concomitant]
  4. UNSPECIFIED MEDICATIONS [Concomitant]

REACTIONS (9)
  - OVARIAN CYST [None]
  - MUSCLE SPASMS [None]
  - RASH PAPULAR [None]
  - INJECTION SITE PAIN [None]
  - CROHN'S DISEASE [None]
  - SURGERY [None]
  - SYSTEMIC LUPUS ERYTHEMATOSUS [None]
  - BURNING SENSATION [None]
  - PAIN IN EXTREMITY [None]
